FAERS Safety Report 21284841 (Version 1)
Quarter: 2022Q3

REPORT INFORMATION
  Report Type: Spontaneous
  Country: US (occurrence: US)
  Receive Date: 20220902
  Receipt Date: 20220902
  Transmission Date: 20221027
  Serious: No
  Sender: FDA-Public Use
  Company Number: ENDG22-02766

PATIENT
  Sex: Female

DRUGS (7)
  1. PREDNISONE [Suspect]
     Active Substance: PREDNISONE
     Indication: Autoimmune disorder
     Dosage: 15 MG, OD
     Route: 065
  2. BUPROPION [Concomitant]
     Active Substance: BUPROPION
     Indication: Depression
     Dosage: UNK UNKNOWN, UNKNOWN
     Route: 065
  3. COVID-19 VACCINE NOS [Concomitant]
     Active Substance: COVID-19 VACCINE NOS
     Indication: COVID-19 immunisation
     Dosage: UNK UNKNOWN, UNKNOWN
     Route: 065
     Dates: start: 20210130
  4. COVID-19 VACCINE NOS [Concomitant]
     Active Substance: COVID-19 VACCINE NOS
     Dosage: UNK UNKNOWN, UNKNOWN
     Route: 065
     Dates: start: 20210220
  5. COVID-19 VACCINE NOS [Concomitant]
     Active Substance: COVID-19 VACCINE NOS
     Dosage: UNK UNKNOWN, UNKNOWN
     Route: 065
     Dates: start: 20210523
  6. COVID-19 VACCINE NOS [Concomitant]
     Active Substance: COVID-19 VACCINE NOS
     Dosage: UNK UNKNOWN, UNKNOWN
     Route: 065
     Dates: start: 20210613
  7. COVID-19 VACCINE NOS [Concomitant]
     Active Substance: COVID-19 VACCINE NOS
     Dosage: UNK UNKNOWN, UNKNOWN
     Route: 065
     Dates: start: 20210915

REACTIONS (1)
  - Weight increased [Unknown]
